FAERS Safety Report 8967286 (Version 1)
Quarter: 2012Q4

REPORT INFORMATION
  Report Type: 
  Country: US (occurrence: US)
  Receive Date: 20121214
  Receipt Date: 20121214
  Transmission Date: 20130627
  Serious: Yes (Other)
  Sender: FDA-Public Use
  Company Number: US-GLAXOSMITHKLINE-A0980804A

PATIENT
  Age: 49 Year
  Sex: Female

DRUGS (5)
  1. FLONASE [Suspect]
     Indication: RHINITIS ALLERGIC
     Dosage: 1SPR Twice per day
     Route: 045
     Dates: start: 20120609, end: 20120609
  2. SYNTHROID [Concomitant]
  3. TRAZODONE [Concomitant]
  4. BUPROPION [Concomitant]
  5. UNSPECIFIED TREATMENT [Concomitant]

REACTIONS (2)
  - Anosmia [Not Recovered/Not Resolved]
  - Ageusia [Not Recovered/Not Resolved]
